FAERS Safety Report 21974866 (Version 1)
Quarter: 2023Q1

REPORT INFORMATION
  Report Type: Spontaneous
  Country: US (occurrence: US)
  Receive Date: 20230209
  Receipt Date: 20230209
  Transmission Date: 20230417
  Serious: No
  Sender: FDA-Public Use
  Company Number: US-SUNOVION-2023SUN000199AA

PATIENT

DRUGS (1)
  1. LATUDA [Suspect]
     Active Substance: LURASIDONE HYDROCHLORIDE
     Indication: Schizoaffective disorder
     Dosage: UNK
     Route: 048

REACTIONS (7)
  - Eye swelling [Unknown]
  - Swelling face [Unknown]
  - Lip swelling [Unknown]
  - Hypersensitivity [Unknown]
  - Urticaria [Unknown]
  - Off label use [Unknown]
  - Drug effective for unapproved indication [Unknown]
